FAERS Safety Report 15163817 (Version 1)
Quarter: 2018Q3

REPORT INFORMATION
  Report Type: Spontaneous
  Country: ES (occurrence: ES)
  Receive Date: 20180719
  Receipt Date: 20180719
  Transmission Date: 20181010
  Serious: Yes (Other)
  Sender: FDA-Public Use
  Company Number: ES-TEVA-2018-ES-928418

PATIENT
  Age: 68 Year
  Sex: Female

DRUGS (5)
  1. TARDYFERON 80 MG COMPRIMIDOS RECUBIERTOS, 30 COMPRIMIDOS [Concomitant]
     Route: 048
  2. IBUPROFENO (1769A) [Concomitant]
     Active Substance: IBUPROFEN
     Route: 065
  3. SITAGLIPTINA + METFORMINA [Concomitant]
     Route: 048
  4. CALCIFEDIOL (547A) [Concomitant]
     Route: 048
  5. LOSARTAN (7157A) [Suspect]
     Active Substance: LOSARTAN
     Route: 048
     Dates: start: 2017, end: 20170912

REACTIONS (1)
  - Malabsorption [Recovered/Resolved]

NARRATIVE: CASE EVENT DATE: 20170822
